FAERS Safety Report 8533990-6 (Version None)
Quarter: 2012Q3

REPORT INFORMATION
  Report Type: 
  Country: None (occurrence: None)
  Receive Date: 20120724
  Receipt Date: 20050310
  Transmission Date: 20120928
  Serious: Yes (Other)
  Sender: FDA-Public Use
  Company Number: BR-ROCHE-1090001

PATIENT

DRUGS (1)
  1. XENICAL [Suspect]
     Indication: WEIGHT DECREASED
     Route: 048

REACTIONS (1)
  - HEPATITIS [None]
